FAERS Safety Report 5410502-7 (Version None)
Quarter: 2007Q3

REPORT INFORMATION
  Report Type: 
  Country: None (occurrence: None)
  Receive Date: 20070810
  Receipt Date: 20070212
  Transmission Date: 20080115
  Serious: No
  Sender: FDA-Public Use
  Company Number: A0637272A

PATIENT
  Age: 42 Year
  Sex: Female

DRUGS (3)
  1. PAXIL [Suspect]
     Indication: DEPRESSION
     Dosage: 40MG PER DAY
     Route: 065
     Dates: start: 20050101
  2. CELEXA [Suspect]
     Indication: DEPRESSION
     Dosage: 20MG PER DAY
     Route: 048
     Dates: start: 20050101, end: 20070101
  3. NO CONCURRENT MEDICATION [Concomitant]

REACTIONS (1)
  - INCREASED TENDENCY TO BRUISE [None]
